FAERS Safety Report 4357253-8 (Version None)
Quarter: 2004Q2

REPORT INFORMATION
  Report Type: 
  Country: None (occurrence: None)
  Receive Date: 20040507
  Receipt Date: 20040421
  Transmission Date: 20050107
  Serious: Yes (Other)
  Sender: FDA-Public Use
  Company Number: USA040465488

PATIENT
  Age: 65 Year
  Sex: Female

DRUGS (4)
  1. GEMZAR [Suspect]
     Indication: PANCREATIC CARCINOMA
     Dosage: 1000 MG
     Dates: start: 20040201, end: 20040401
  2. ZOFRAN [Concomitant]
  3. DECADRON [Concomitant]
  4. ATIVAN [Concomitant]

REACTIONS (4)
  - MALIGNANT NEOPLASM PROGRESSION [None]
  - OBSTRUCTION [None]
  - PANCREATIC CARCINOMA [None]
  - THROMBOCYTHAEMIA [None]
